FAERS Safety Report 9519573 (Version 2)
Quarter: 2013Q3

REPORT INFORMATION
  Report Type: Spontaneous
  Country: JP (occurrence: JP)
  Receive Date: 20130912
  Receipt Date: 20130924
  Transmission Date: 20140515
  Serious: Yes (Death, Hospitalization)
  Sender: FDA-Public Use
  Company Number: PHHY2013JP100645

PATIENT
  Age: 79 Year
  Sex: Female

DRUGS (4)
  1. ETHAMBUTOL SANDOZ [Suspect]
     Indication: DISSEMINATED TUBERCULOSIS
     Route: 048
  2. RIFAMPICIN [Concomitant]
     Indication: DISSEMINATED TUBERCULOSIS
     Route: 048
  3. ISONIAZID [Concomitant]
     Indication: DISSEMINATED TUBERCULOSIS
     Route: 048
  4. LEVOFLOXACIN HYDRATE [Concomitant]
     Route: 048

REACTIONS (5)
  - Myocardial infarction [Fatal]
  - Disseminated intravascular coagulation [Unknown]
  - Drug eruption [Unknown]
  - Fibrin degradation products increased [Unknown]
  - Platelet count decreased [Unknown]
